FAERS Safety Report 9658672 (Version 2)
Quarter: 2013Q4

REPORT INFORMATION
  Report Type: Spontaneous
  Country: US (occurrence: US)
  Receive Date: 20131030
  Receipt Date: 20131030
  Transmission Date: 20140711
  Serious: No
  Sender: FDA-Public Use
  Company Number: US-PURDUE-USA-2011-0075117

PATIENT
  Age: 84 Year
  Sex: Female
  Weight: 43 kg

DRUGS (5)
  1. OXYCONTIN (NDA 22-272) [Suspect]
     Indication: PELVIC PAIN
     Dosage: 20 MG, BID
     Dates: start: 201102, end: 201108
  2. OXYCODONE HCL IMMEDIATE RELEASE (91-490) [Concomitant]
     Indication: PELVIC PAIN
     Dosage: 5 MG, BID
  3. LEVOTHYROXIN [Concomitant]
     Indication: PRODUCT USED FOR UNKNOWN INDICATION
     Dosage: 75 MCG, UNK
  4. OMEPRAZOLE [Concomitant]
     Indication: PRODUCT USED FOR UNKNOWN INDICATION
  5. ESTRACE [Concomitant]
     Indication: PRODUCT USED FOR UNKNOWN INDICATION

REACTIONS (7)
  - Drug withdrawal syndrome [Unknown]
  - Insomnia [Not Recovered/Not Resolved]
  - Restlessness [Unknown]
  - Diarrhoea [Unknown]
  - Cough [Unknown]
  - Feeling abnormal [Unknown]
  - Disturbance in attention [Unknown]
